FAERS Safety Report 16406023 (Version 14)
Quarter: 2021Q4

REPORT INFORMATION
  Report Type: Spontaneous
  Country: US (occurrence: US)
  Receive Date: 20190607
  Receipt Date: 20211209
  Transmission Date: 20220303
  Serious: Yes (Other)
  Sender: FDA-Public Use
  Company Number: US-PFIZER INC-2016536579

PATIENT
  Age: 65 Year
  Sex: Female
  Weight: 82 kg

DRUGS (32)
  1. LYRICA [Suspect]
     Active Substance: PREGABALIN
     Indication: Migraine
     Dosage: 75 MG, 2X/DAY
     Route: 048
     Dates: start: 20160809, end: 2016
  2. LYRICA [Suspect]
     Active Substance: PREGABALIN
     Indication: Polyneuropathy
     Dosage: 150 MG, 2X/DAY
     Route: 048
     Dates: start: 20161012, end: 2016
  3. LYRICA [Suspect]
     Active Substance: PREGABALIN
     Dosage: 150 MG, 2X/DAY (ONE IN THE MORNING AND ONE AT BEDTIME)
     Route: 048
     Dates: start: 2016
  4. LYRICA [Suspect]
     Active Substance: PREGABALIN
     Dosage: 150 MG, 1X/DAY
  5. LYRICA [Suspect]
     Active Substance: PREGABALIN
     Dosage: 100 MG, 1X/DAY
  6. LYRICA [Suspect]
     Active Substance: PREGABALIN
     Dosage: 150 MG, 2X/DAY
     Route: 048
     Dates: start: 20201215
  7. EFFEXOR XR [Concomitant]
     Active Substance: VENLAFAXINE HYDROCHLORIDE
     Dosage: 150 MG, 1X/DAY (AT BEDTIME)
     Route: 048
  8. PROTONIX [Concomitant]
     Active Substance: PANTOPRAZOLE SODIUM
     Dosage: 20 MG, DAILY
     Route: 048
  9. XANAX [Concomitant]
     Active Substance: ALPRAZOLAM
     Dosage: 0.5 MG, AS NEEDED (3 TIMES A DAY AS NEEDED )
     Route: 048
  10. XANAX [Concomitant]
     Active Substance: ALPRAZOLAM
     Dosage: 1 MG, 1X/DAY (NIGHTLY)
     Route: 048
  11. MEDROL [Concomitant]
     Active Substance: METHYLPREDNISOLONE
     Dosage: 4 MG, 2X/DAY
     Route: 048
  12. ALEVE [Concomitant]
     Active Substance: NAPROXEN SODIUM
     Dosage: UNK, AS NEEDED (2 TIMES A DAY AS NEEDED)
     Route: 048
  13. BIOTIN [Concomitant]
     Active Substance: BIOTIN
     Dosage: UNK, 1X/DAY (QD)
     Route: 048
  14. BROMPHENIRAMINE W/PSEUDOEPHEDRINE [Concomitant]
     Dosage: UNK, 1X/DAY (QD)
     Route: 048
  15. LORATADINE [Concomitant]
     Active Substance: LORATADINE
     Dosage: UNK, AS NEEDED (DAILY AS NEEDED)
     Route: 048
  16. DEMADEX [Concomitant]
     Active Substance: TORSEMIDE
     Dosage: 20 MG, DAILY
     Route: 048
  17. DILAUDID [Concomitant]
     Active Substance: HYDROMORPHONE HYDROCHLORIDE
     Dosage: UNK
  18. EVENING PRIMROSE OIL\HERBALS [Concomitant]
     Active Substance: EVENING PRIMROSE OIL\HERBALS
     Dosage: UNK, DAILY
     Route: 048
  19. HYDROMORPHONE [Concomitant]
     Active Substance: HYDROMORPHONE
     Indication: Spinal operation
     Dosage: 0.12 MG (PER HOUR)
  20. KEPPRA [Concomitant]
     Active Substance: LEVETIRACETAM
     Dosage: 1500 MG, DAILY (TAKE 3 TABLETS IN THE AM )
     Route: 048
     Dates: start: 20160706
  21. LINZESS [Concomitant]
     Active Substance: LINACLOTIDE
     Dosage: 1 TABLET, DAILY
     Route: 048
  22. MAGNESIUM OXIDE [Concomitant]
     Active Substance: MAGNESIUM OXIDE
     Dosage: 400 MG, DAILY
     Route: 048
  23. MAXALT [Concomitant]
     Active Substance: RIZATRIPTAN BENZOATE
     Indication: Headache
     Dosage: 10 MG, AS NEEDED (ONSET OF HEADACHE, MAY REPEAT ONCE IN 2 HOURS IF NEEDED)
     Route: 048
     Dates: start: 20160808
  24. DAZIDOX [Concomitant]
     Indication: Pain
     Dosage: 10 MG, AS NEEDED (EVERY 4 HOURS AS NEEDED)
     Route: 048
     Dates: start: 20150820
  25. KLOR-CON [Concomitant]
     Active Substance: POTASSIUM CHLORIDE
     Dosage: 20 MEQ, 2X/DAY
     Route: 048
  26. VITAMIN B2 [Concomitant]
     Active Substance: RIBOFLAVIN
     Dosage: 200 MG, DAILY
     Route: 048
  27. ROXICODONE [Concomitant]
     Active Substance: OXYCODONE HYDROCHLORIDE
     Indication: Pain
     Dosage: 5 MG, AS NEEDED (EVERY 6 HOURS AS NEEDED)
     Route: 048
     Dates: start: 20150521, end: 2015
  28. ROXICODONE [Concomitant]
     Active Substance: OXYCODONE HYDROCHLORIDE
     Dosage: 5 MG, AS NEEDED (EVERY 4 HOURS AS NEEDED)
     Route: 048
     Dates: start: 20150707
  29. TYLENOL [Concomitant]
     Active Substance: ACETAMINOPHEN
     Dosage: UNK, AS NEEDED
     Route: 048
  30. VITAMIN E-400 [Concomitant]
     Dosage: 400 IU, DAILY
     Route: 048
  31. VITAMIN B12 [Concomitant]
     Active Substance: CYANOCOBALAMIN
     Dosage: 500 MG, DAILY
     Route: 048
  32. WELLBUTRIN XL [Concomitant]
     Active Substance: BUPROPION HYDROCHLORIDE
     Dosage: 150 MG, DAILY
     Route: 048
     Dates: start: 20160812

REACTIONS (18)
  - Spinal cord compression [Recovering/Resolving]
  - Weight decreased [Unknown]
  - Visual impairment [Unknown]
  - Neuralgia [Recovering/Resolving]
  - Withdrawal syndrome [Unknown]
  - Tremor [Unknown]
  - Feeling of body temperature change [Unknown]
  - Dizziness [Unknown]
  - Nausea [Unknown]
  - Headache [Unknown]
  - Feeling abnormal [Unknown]
  - Pain [Unknown]
  - Sitting disability [Unknown]
  - Dyspnoea [Unknown]
  - Panic reaction [Unknown]
  - Off label use [Unknown]
  - Intentional product use issue [Unknown]
  - Drug effective for unapproved indication [Unknown]

NARRATIVE: CASE EVENT DATE: 20200625
